FAERS Safety Report 9631806 (Version 1)
Quarter: 2013Q4

REPORT INFORMATION
  Report Type: Spontaneous
  Country: ES (occurrence: None)
  Receive Date: 20131015
  Receipt Date: 20131015
  Transmission Date: 20140711
  Serious: Yes (Hospitalization)
  Sender: FDA-Public Use
  Company Number: FK201304489

PATIENT
  Age: 59 Year
  Sex: Female

DRUGS (2)
  1. LEVOTHYROXINE [Suspect]
     Indication: HYPOTHYROIDISM
     Dosage: WITHDRAWN 4 WEEKS PRIOR TO ADVERSE EVENT
  2. IODINE I-131 [Concomitant]

REACTIONS (3)
  - Ileus paralytic [None]
  - Abdominal hernia obstructive [None]
  - Leukocytosis [None]
